FAERS Safety Report 4284265-5 (Version None)
Quarter: 2004Q1

REPORT INFORMATION
  Report Type: 
  Country: None (occurrence: None)
  Receive Date: 20040203
  Receipt Date: 20040112
  Transmission Date: 20041129
  Serious: Yes (Life-Threatening)
  Sender: FDA-Public Use
  Company Number: WAES 0401USA00804

PATIENT
  Age: 43 Year
  Sex: Male

DRUGS (11)
  1. [THERAPY UNSPECIFIED] [Concomitant]
  2. [THERAPY UNSPECIFIED] [Concomitant]
  3. DARVOCET-N 100 [Concomitant]
  4. FOSAMAX [Suspect]
     Indication: OSTEOPOROSIS
     Route: 048
     Dates: start: 20030101
  5. LONOX [Concomitant]
  6. CYCLOBENZAPRINE HYDROCHLORIDE [Concomitant]
  7. DEPAKOTE [Concomitant]
  8. NEXIUM [Concomitant]
  9. IBUPROFEN [Concomitant]
  10. LORAZEPAM [Concomitant]
  11. SKELAXIN [Concomitant]

REACTIONS (2)
  - ASTHENIA [None]
  - NAUSEA [None]
